FAERS Safety Report 5240314-9 (Version None)
Quarter: 2007Q1

REPORT INFORMATION
  Report Type: 
  Country: None (occurrence: None)
  Receive Date: 20061208
  Receipt Date: 20050411
  Transmission Date: 20070707
  Serious: Yes (Other)
  Sender: FDA-Public Use
  Company Number: 2005UW05575

PATIENT
  Age: 76 Year
  Sex: Male
  Weight: 88.45 kg

DRUGS (3)
  1. CRESTOR [Suspect]
     Indication: BLOOD CHOLESTEROL INCREASED
     Dosage: 10 MG QD PO
     Route: 048
  2. ARIMIDEX [Concomitant]
  3. TESTOSTERONE [Concomitant]

REACTIONS (3)
  - ABDOMINAL PAIN [None]
  - LETHARGY [None]
  - PAIN [None]
